FAERS Safety Report 9625811 (Version 4)
Quarter: 2013Q4

REPORT INFORMATION
  Report Type: Spontaneous
  Country: DE (occurrence: DE)
  Receive Date: 20131016
  Receipt Date: 20131218
  Transmission Date: 20140711
  Serious: Yes (Other)
  Sender: FDA-Public Use
  Company Number: DE-PFIZER INC-2013267996

PATIENT
  Sex: Male

DRUGS (1)
  1. LYRICA [Suspect]
     Dosage: UNK

REACTIONS (6)
  - Lung neoplasm malignant [Unknown]
  - Pulmonary oedema [Unknown]
  - Dyspnoea [Unknown]
  - Borrelia infection [Unknown]
  - Arthropod bite [Unknown]
  - Arthralgia [Unknown]
